FAERS Safety Report 8115119-1 (Version None)
Quarter: 2012Q1

REPORT INFORMATION
  Report Type: 
  Country: None (occurrence: None)
  Receive Date: 20120206
  Receipt Date: 20120128
  Transmission Date: 20120608
  Serious: Yes (Hospitalization)
  Sender: FDA-Public Use
  Company Number: DE-JNJFOC-20120112392

PATIENT
  Sex: Female
  Weight: 65 kg

DRUGS (4)
  1. DIAZEPAM [Suspect]
     Indication: PSYCHOTIC DISORDER
     Route: 030
     Dates: start: 20120128
  2. LORAZEPAM [Suspect]
     Indication: PSYCHOTIC DISORDER
     Route: 030
     Dates: start: 20120128
  3. HALDOL [Suspect]
     Indication: PSYCHOTIC DISORDER
     Dosage: 25 MG ONCE A DAY
     Route: 042
     Dates: start: 20120128
  4. MIDAZOLAM HCL [Suspect]
     Indication: PSYCHOTIC DISORDER
     Route: 042
     Dates: start: 20120128

REACTIONS (2)
  - INCORRECT ROUTE OF DRUG ADMINISTRATION [None]
  - ELECTROCARDIOGRAM QT PROLONGED [None]
